FAERS Safety Report 8825942 (Version 1)
Quarter: 2012Q4

REPORT INFORMATION
  Report Type: 
  Country: US (occurrence: US)
  Receive Date: 20121005
  Receipt Date: 20121005
  Transmission Date: 20130627
  Serious: Yes (Hospitalization)
  Sender: FDA-Public Use
  Company Number: US-ACTELION-A-NJ2012-71314

PATIENT
  Age: 64 Year
  Sex: Male

DRUGS (4)
  1. TRACLEER [Suspect]
     Indication: PULMONARY ARTERIAL HYPERTENSION
     Dosage: UNK
     Route: 048
  2. COUMADIN [Suspect]
  3. SILDENAFIL [Concomitant]
  4. ASPIRIN [Concomitant]

REACTIONS (2)
  - Epistaxis [Unknown]
  - Coagulation time prolonged [Unknown]
